FAERS Safety Report 14226901 (Version 1)
Quarter: 2017Q4

REPORT INFORMATION
  Report Type: Report from Study
  Country: US (occurrence: US)
  Receive Date: 20171127
  Receipt Date: 20171127
  Transmission Date: 20180321
  Serious: Yes (Other)
  Sender: FDA-Public Use
  Company Number: US-BAYER-2017-225013

PATIENT
  Age: 64 Year
  Sex: Male

DRUGS (3)
  1. DIPYRIDAMOLE. [Suspect]
     Active Substance: DIPYRIDAMOLE
  2. ACETYLSALICYLIC ACID [Suspect]
     Active Substance: ASPIRIN
     Dosage: UNK
  3. WARFARIN [Suspect]
     Active Substance: WARFARIN

REACTIONS (4)
  - Intraventricular haemorrhage [None]
  - Labelled drug-drug interaction medication error [None]
  - Haemorrhage [None]
  - Drug administration error [None]
